FAERS Safety Report 5590267-9 (Version None)
Quarter: 2008Q1

REPORT INFORMATION
  Report Type: 
  Country: None (occurrence: None)
  Receive Date: 20080114
  Receipt Date: 20080110
  Transmission Date: 20080703
  Serious: Yes (Death)
  Sender: FDA-Public Use
  Company Number: US-ASTRAZENECA-2008AC00153

PATIENT
  Age: 24 Year
  Sex: Male

DRUGS (5)
  1. ROSUVASTATIN [Suspect]
  2. ALPRAZOLAM [Suspect]
  3. OXYCODONE [Suspect]
  4. CODEINE [Suspect]
  5. OLMESARTAN MEDOXOMIL [Suspect]

REACTIONS (2)
  - CARDIO-RESPIRATORY ARREST [None]
  - DRUG ABUSE [None]
